FAERS Safety Report 8312730-X (Version None)
Quarter: 2012Q2

REPORT INFORMATION
  Report Type: 
  Country: None (occurrence: None)
  Receive Date: 20120426
  Receipt Date: 20120418
  Transmission Date: 20120825
  Serious: Yes (Hospitalization)
  Sender: FDA-Public Use
  Company Number: US-BIOGENIDEC-2012BI013469

PATIENT
  Age: 45 Year
  Sex: Female

DRUGS (1)
  1. AVONEX [Suspect]
     Indication: MULTIPLE SCLEROSIS
     Route: 030
     Dates: start: 20040116

REACTIONS (5)
  - JUGULAR VEIN THROMBOSIS [None]
  - PNEUMONIA [None]
  - CELLULITIS [None]
  - PYREXIA [None]
  - CENTRAL VENOUS CATHETERISATION [None]
